FAERS Safety Report 25504167 (Version 3)
Quarter: 2025Q3

REPORT INFORMATION
  Report Type: Spontaneous
  Country: EU (occurrence: EU)
  Receive Date: 20250702
  Receipt Date: 20250901
  Transmission Date: 20251020
  Serious: Yes (Disabling)
  Sender: AUROBINDO
  Company Number: EU-AFSSAPS-RE2025000522

PATIENT
  Age: 32 Year
  Sex: Female
  Weight: 65 kg

DRUGS (1)
  1. CIPROFLOXACIN HYDROCHLORIDE [Suspect]
     Active Substance: CIPROFLOXACIN HYDROCHLORIDE
     Indication: Pyelonephritis
     Dosage: 1000 MILLIGRAM, ONCE A DAY
     Route: 048
     Dates: start: 20220825, end: 20220829

REACTIONS (15)
  - Bradycardia [Not Recovered/Not Resolved]
  - Cognitive disorder [Not Recovered/Not Resolved]
  - Formication [Not Recovered/Not Resolved]
  - Fatigue [Not Recovered/Not Resolved]
  - Hypoaesthesia [Not Recovered/Not Resolved]
  - Malaise [Not Recovered/Not Resolved]
  - Muscular weakness [Not Recovered/Not Resolved]
  - Memory impairment [Not Recovered/Not Resolved]
  - Postprandial hypoglycaemia [Not Recovered/Not Resolved]
  - Photophobia [Not Recovered/Not Resolved]
  - Pain [Not Recovered/Not Resolved]
  - Skin discolouration [Not Recovered/Not Resolved]
  - Tachycardia [Not Recovered/Not Resolved]
  - Vertigo [Not Recovered/Not Resolved]
  - Photosensitivity reaction [Not Recovered/Not Resolved]

NARRATIVE: CASE EVENT DATE: 20220826
